FAERS Safety Report 5467006-5 (Version None)
Quarter: 2007Q3

REPORT INFORMATION
  Report Type: 
  Country: None (occurrence: None)
  Receive Date: 20070925
  Receipt Date: 20070919
  Transmission Date: 20080115
  Serious: Yes (Hospitalization)
  Sender: FDA-Public Use
  Company Number: A0683025A

PATIENT
  Age: 77 Year
  Sex: Male

DRUGS (3)
  1. AVANDIA [Suspect]
     Dosage: 8MG PER DAY
     Route: 048
     Dates: start: 20050101
  2. METFORMIN HCL [Concomitant]
  3. CONCURRENT MEDICATIONS [Concomitant]

REACTIONS (5)
  - ANXIETY [None]
  - BED REST [None]
  - CARDIAC FAILURE [None]
  - DYSPNOEA [None]
  - TERMINAL STATE [None]
